FAERS Safety Report 9663468 (Version 1)
Quarter: 2013Q4

REPORT INFORMATION
  Report Type: Spontaneous
  Country: TR (occurrence: TR)
  Receive Date: 20131101
  Receipt Date: 20131101
  Transmission Date: 20140711
  Serious: Yes (Hospitalization, Congenital Anomaly, Other)
  Sender: FDA-Public Use
  Company Number: TR-ACCORD-020133

PATIENT
  Age: 5 Day
  Sex: Female

DRUGS (4)
  1. MONTELUKAST [Suspect]
     Indication: ASTHMA
     Route: 064
  2. FOLIC ACID [Suspect]
     Indication: PRODUCT USED FOR UNKNOWN INDICATION
     Route: 064
  3. SALBUTAMOL SULFATE [Suspect]
     Indication: ASTHMA
     Dosage: AEROSOL, 20 MCG/DOSAGE
     Route: 064
  4. IPRATROPIUM BROMIDE [Suspect]
     Indication: ASTHMA
     Dosage: 20 MCG/DOSAGE
     Route: 064

REACTIONS (5)
  - Aplasia cutis congenita [Recovered/Resolved with Sequelae]
  - Congenital hypertrichosis [Unknown]
  - Hyperbilirubinaemia [Unknown]
  - Foetal exposure during pregnancy [Unknown]
  - Rash erythematous [Unknown]
